FAERS Safety Report 8623112-5 (Version None)
Quarter: 2012Q3

REPORT INFORMATION
  Report Type: 
  Country: None (occurrence: None)
  Receive Date: 20120827
  Receipt Date: 20120809
  Transmission Date: 20120928
  Serious: Yes (Other)
  Sender: FDA-Public Use
  Company Number: JP-009507513-1208JPN004776

PATIENT

DRUGS (6)
  1. TALION (BEPOTASTINE BESYLATE) [Concomitant]
     Indication: RHINITIS ALLERGIC
     Dosage: 20 MG, QD
     Route: 048
  2. TELAVIC [Suspect]
     Indication: HEPATITIS C
     Dosage: 1500 MG, QD
     Route: 048
     Dates: start: 20120612, end: 20120617
  3. PEG-INTRON [Suspect]
     Indication: HEPATITIS C
     Dosage: 80 MICROGRAM PER KILOGRAM, QW
     Route: 058
     Dates: start: 20120612, end: 20120617
  4. REBETOL [Suspect]
     Indication: HEPATITIS C
     Dosage: 400 MG, QD
     Route: 048
     Dates: start: 20120612, end: 20120617
  5. MUCOSTA [Concomitant]
     Indication: PROPHYLAXIS
     Dosage: 100 MG, QD, FORMULATION- POR
     Route: 048
     Dates: start: 20120612, end: 20120617
  6. LOXONIN [Concomitant]
     Indication: PROPHYLAXIS
     Dosage: 60 MG, QD, FORMULATION-POR
     Route: 048
     Dates: start: 20120612, end: 20120617

REACTIONS (1)
  - NAUSEA [None]
